FAERS Safety Report 9425524 (Version 2)
Quarter: 2013Q3

REPORT INFORMATION
  Report Type: Spontaneous
  Country: US (occurrence: US)
  Receive Date: 20130729
  Receipt Date: 20130930
  Transmission Date: 20140515
  Serious: No
  Sender: FDA-Public Use
  Company Number: US-PFIZER INC-2013219408

PATIENT
  Sex: Male

DRUGS (2)
  1. LIPITOR [Suspect]
     Dosage: UNK
  2. XALATAN [Suspect]
     Dosage: UNK

REACTIONS (2)
  - Depressed mood [Unknown]
  - Confusional state [Unknown]
